FAERS Safety Report 7282715-3 (Version None)
Quarter: 2011Q1

REPORT INFORMATION
  Report Type: 
  Country: None (occurrence: None)
  Receive Date: 20110125
  Receipt Date: 20110111
  Transmission Date: 20110831
  Serious: Yes (Death)
  Sender: FDA-Public Use
  Company Number: IPC201101-000020

PATIENT
  Age: 76 Year
  Sex: Female

DRUGS (8)
  1. HYDROCODONE BITARTRATE AND ACETAMINOPHEN [Suspect]
     Dosage: ORAL
     Route: 048
  2. ALPRAZOLAM [Suspect]
     Dosage: ORAL
     Route: 048
  3. PANTOPRAZOLE [Suspect]
     Dosage: ORAL
     Route: 048
  4. SIMVASTATIN [Suspect]
     Dosage: ORAL
     Route: 048
  5. METHADONE [Suspect]
     Dosage: ORAL
     Route: 048
  6. FUROSEMIDE [Suspect]
     Dosage: ORAL
     Route: 048
  7. AMPHETAMINE [Suspect]
     Dosage: ORAL
     Route: 048
  8. LEVOTHYROXINE [Suspect]
     Dosage: ORAL
     Route: 048

REACTIONS (1)
  - COMPLETED SUICIDE [None]
